FAERS Safety Report 5226580-4 (Version None)
Quarter: 2007Q1

REPORT INFORMATION
  Report Type: 
  Country: None (occurrence: None)
  Receive Date: 20070201
  Receipt Date: 20070131
  Transmission Date: 20070707
  Serious: Yes (Other)
  Sender: FDA-Public Use
  Company Number: MX-ROXANE LABORATORIES, INC-2007-BP-01569RO

PATIENT
  Age: 50 Year
  Sex: Female

DRUGS (2)
  1. MIRTAZAPINE [Suspect]
     Indication: DEPRESSION
     Dosage: 15 MG DAILY
     Route: 048
  2. FLUOXETINE [Suspect]
     Indication: DEPRESSION
     Dosage: 20 MG DAILY
     Route: 048

REACTIONS (4)
  - DRUG INTERACTION [None]
  - DYSKINESIA [None]
  - PARAESTHESIA [None]
  - RESTLESS LEGS SYNDROME [None]
